FAERS Safety Report 7345862-3 (Version None)
Quarter: 2011Q1

REPORT INFORMATION
  Report Type: 
  Country: None (occurrence: None)
  Receive Date: 20110311
  Receipt Date: 20110304
  Transmission Date: 20110831
  Serious: No
  Sender: FDA-Public Use
  Company Number: US-BIOGENIDEC-2011BI001044

PATIENT
  Age: 53 Year
  Sex: Female

DRUGS (3)
  1. TYSABRI [Suspect]
     Indication: MULTIPLE SCLEROSIS
     Route: 042
     Dates: start: 20100915
  2. LORAZEPAM [Concomitant]
     Indication: FIBROMYALGIA
  3. GABAPENTIN [Concomitant]
     Indication: FIBROMYALGIA

REACTIONS (7)
  - COUGH [None]
  - WEIGHT INCREASED [None]
  - PAIN IN EXTREMITY [None]
  - HEADACHE [None]
  - BURNING SENSATION [None]
  - MYALGIA [None]
  - DYSPHONIA [None]
